FAERS Safety Report 18962375 (Version 1)
Quarter: 2021Q1

REPORT INFORMATION
  Report Type: Spontaneous
  Country: US (occurrence: US)
  Receive Date: 20210302
  Receipt Date: 20210302
  Transmission Date: 20210420
  Serious: Yes (Hospitalization)
  Sender: FDA-Public Use
  Company Number: None

PATIENT
  Age: 67 Year
  Sex: Female

DRUGS (22)
  1. CYCLOSPORINE. [Suspect]
     Active Substance: CYCLOSPORINE
     Indication: RENAL TRANSPLANT
     Dosage: ?          OTHER FREQUENCY:EVERY 12 HOURS;?
     Route: 048
     Dates: start: 20210125
  2. LAMOTRIGINE. [Concomitant]
     Active Substance: LAMOTRIGINE
  3. CIPROFLOXACIN. [Concomitant]
     Active Substance: CIPROFLOXACIN
  4. VALTREX [Concomitant]
     Active Substance: VALACYCLOVIR HYDROCHLORIDE
  5. LISINOPRIL. [Concomitant]
     Active Substance: LISINOPRIL
  6. ESTRADIOL. [Concomitant]
     Active Substance: ESTRADIOL
  7. MIACALCIN [Concomitant]
     Active Substance: CALCITONIN SALMON
  8. GENGRAF [Concomitant]
     Active Substance: CYCLOSPORINE
  9. ARANESP [Concomitant]
     Active Substance: DARBEPOETIN ALFA
  10. HUMALOG [Concomitant]
     Active Substance: INSULIN LISPRO
  11. TRAZODONE [Concomitant]
     Active Substance: TRAZODONE HYDROCHLORIDE
  12. LEVOTHYROXINE. [Concomitant]
     Active Substance: LEVOTHYROXINE
  13. PRAVASTATIN. [Concomitant]
     Active Substance: PRAVASTATIN
  14. FUROSEMIDE. [Concomitant]
     Active Substance: FUROSEMIDE
  15. URSO [Concomitant]
     Active Substance: URSODIOL
  16. LANTUS [Concomitant]
     Active Substance: INSULIN GLARGINE
  17. LAMICTAL [Concomitant]
     Active Substance: LAMOTRIGINE
  18. CALCITONIN [Concomitant]
     Active Substance: CALCITONIN
  19. METRONIDAZOLE. [Concomitant]
     Active Substance: METRONIDAZOLE
  20. ACIPHEX [Concomitant]
     Active Substance: RABEPRAZOLE SODIUM
  21. PREDNISONE. [Concomitant]
     Active Substance: PREDNISONE
  22. ZETIA [Concomitant]
     Active Substance: EZETIMIBE

REACTIONS (1)
  - Myocardial infarction [None]
